FAERS Safety Report 9804553 (Version 8)
Quarter: 2016Q3

REPORT INFORMATION
  Report Type: Spontaneous
  Country: US (occurrence: US)
  Receive Date: 20140108
  Receipt Date: 20160805
  Transmission Date: 20161109
  Serious: Yes (Disabling)
  Sender: FDA-Public Use
  Company Number: US-009507513-1109USA02522

PATIENT
  Sex: Male
  Weight: 97.51 kg

DRUGS (2)
  1. PROPECIA [Suspect]
     Active Substance: FINASTERIDE
     Indication: ALOPECIA
     Dosage: UNK UNK, UNKNOWN
     Route: 048
     Dates: start: 2005
  2. PROPECIA [Suspect]
     Active Substance: FINASTERIDE
     Dosage: UNK, UNKNOWN
     Route: 048
     Dates: start: 20050301, end: 201005

REACTIONS (11)
  - Orgasmic sensation decreased [Unknown]
  - Loss of libido [Unknown]
  - High risk sexual behaviour [Unknown]
  - Sexual dysfunction [Unknown]
  - Upper-airway cough syndrome [Unknown]
  - Nasal polyps [Not Recovered/Not Resolved]
  - Erectile dysfunction [Unknown]
  - Semen analysis abnormal [Unknown]
  - Testicular pain [Unknown]
  - Emotional distress [Unknown]
  - Anxiety [Unknown]

NARRATIVE: CASE EVENT DATE: 2009
